FAERS Safety Report 20741163 (Version 1)
Quarter: 2022Q2

REPORT INFORMATION
  Report Type: Spontaneous
  Country: BR (occurrence: BR)
  Receive Date: 20220422
  Receipt Date: 20220422
  Transmission Date: 20220721
  Serious: Yes (Other)
  Sender: FDA-Public Use
  Company Number: BR-BIOMARINAP-BR-2022-142808

PATIENT
  Age: 32 Year
  Sex: Male

DRUGS (1)
  1. NAGLAZYME [Suspect]
     Active Substance: GALSULFASE
     Indication: Mucopolysaccharidosis VI
     Route: 065

REACTIONS (9)
  - Hydrocephalus [Unknown]
  - Blindness [Unknown]
  - Deafness [Unknown]
  - Pulmonary hypertension [Unknown]
  - Corneal opacity [Unknown]
  - Aortic valve disease [Unknown]
  - Mitral valve disease [Unknown]
  - Sleep apnoea syndrome [Unknown]
  - Tooth disorder [Unknown]
